FAERS Safety Report 16140004 (Version 1)
Quarter: 2019Q2

REPORT INFORMATION
  Report Type: Spontaneous
  Country: US (occurrence: US)
  Receive Date: 20190329
  Receipt Date: 20190329
  Transmission Date: 20190711
  Serious: Yes (Hospitalization, Disabling)
  Sender: FDA-Public Use
  Company Number: None

PATIENT
  Age: 56 Year
  Sex: Female
  Weight: 67.5 kg

DRUGS (4)
  1. DEXAMETHASONE. [Concomitant]
     Active Substance: DEXAMETHASONE
  2. LOSARTAN POTASSIUM. [Suspect]
     Active Substance: LOSARTAN POTASSIUM
     Indication: HYPERTENSION
     Dates: start: 20121001, end: 20140219
  3. REVLIMID [Concomitant]
     Active Substance: LENALIDOMIDE
  4. VITAMIN B3 [Concomitant]
     Active Substance: NIACIN

REACTIONS (2)
  - Recalled product [None]
  - Plasma cell myeloma [None]

NARRATIVE: CASE EVENT DATE: 20121001
